FAERS Safety Report 7530803-6 (Version None)
Quarter: 2011Q2

REPORT INFORMATION
  Report Type: 
  Country: None (occurrence: None)
  Receive Date: 20110607
  Receipt Date: 20071220
  Transmission Date: 20111010
  Serious: Yes (Hospitalization, Other)
  Sender: FDA-Public Use
  Company Number: BE-GENENTECH-319901

PATIENT
  Sex: Female
  Weight: 74 kg

DRUGS (12)
  1. SINGULAIR [Concomitant]
     Indication: PRODUCT USED FOR UNKNOWN INDICATION
  2. CRESTOR [Concomitant]
     Indication: PRODUCT USED FOR UNKNOWN INDICATION
  3. COMBIVENT [Concomitant]
     Indication: PRODUCT USED FOR UNKNOWN INDICATION
  4. XOLAIR [Suspect]
     Indication: ASTHMA
     Dosage: 225 MG, 2/WEEK
     Route: 058
     Dates: start: 20061016
  5. XANTHIUM [Concomitant]
     Indication: PRODUCT USED FOR UNKNOWN INDICATION
  6. MEDROL [Concomitant]
     Indication: PRODUCT USED FOR UNKNOWN INDICATION
  7. SYMBICORT [Concomitant]
     Indication: PRODUCT USED FOR UNKNOWN INDICATION
  8. INSULIN [Concomitant]
     Indication: PRODUCT USED FOR UNKNOWN INDICATION
  9. GLURENORM [Concomitant]
     Indication: PRODUCT USED FOR UNKNOWN INDICATION
  10. AVANDIA [Concomitant]
     Indication: PRODUCT USED FOR UNKNOWN INDICATION
  11. LYSOMUCIL [Concomitant]
     Indication: PRODUCT USED FOR UNKNOWN INDICATION
  12. ZANTAC [Concomitant]
     Indication: PRODUCT USED FOR UNKNOWN INDICATION

REACTIONS (8)
  - RESPIRATORY TRACT INFECTION [None]
  - WHITE BLOOD CELL COUNT INCREASED [None]
  - BACTERIAL TEST POSITIVE [None]
  - HYPERGLYCAEMIA [None]
  - INFLAMMATION [None]
  - NEUTROPHIL COUNT DECREASED [None]
  - DIABETES MELLITUS [None]
  - ASTHMA [None]
